FAERS Safety Report 19183745 (Version 6)
Quarter: 2021Q3

REPORT INFORMATION
  Report Type: Spontaneous
  Country: JP (occurrence: JP)
  Receive Date: 20210427
  Receipt Date: 20210718
  Transmission Date: 20211014
  Serious: Yes (Life-Threatening)
  Sender: FDA-Public Use
  Company Number: JP-JNJFOC-20210451814

PATIENT
  Age: 49 Year
  Sex: Female

DRUGS (3)
  1. REMICADE [Suspect]
     Active Substance: INFLIXIMAB
     Indication: COLITIS ULCERATIVE
     Dosage: 5 MILLIGRAM/KILOGRAM, QD?DRUG START PERIOD 3018  (DAYS)? DRUG LAST PERIOD 8 (DAYS)
     Route: 042
     Dates: start: 20101110
  2. REMICADE [Suspect]
     Active Substance: INFLIXIMAB
     Dosage: 5 MILLIGRAM/KILOGRAM, QD?DRUG START PERIOD 3018  (DAYS)?DRUG LAST PERIOD 8 (DAYS)
     Route: 042
     Dates: start: 20190206, end: 20190206
  3. ASACOL [Concomitant]
     Active Substance: MESALAMINE
     Indication: COLITIS ULCERATIVE
     Dosage: 3600 MILLIGRAM, QD?DRUG START PERIOD 3087  (DAYS)
     Route: 048
     Dates: start: 20100902, end: 20190410

REACTIONS (1)
  - Breast cancer [Recovering/Resolving]

NARRATIVE: CASE EVENT DATE: 20190213
